FAERS Safety Report 7703969-2 (Version None)
Quarter: 2011Q3

REPORT INFORMATION
  Report Type: 
  Country: None (occurrence: None)
  Receive Date: 20110823
  Receipt Date: 20110809
  Transmission Date: 20111222
  Serious: Yes (Hospitalization)
  Sender: FDA-Public Use
  Company Number: DE-ROCHE-797910

PATIENT
  Sex: Male
  Weight: 62 kg

DRUGS (6)
  1. PEGINTERFERON ALFA-2A [Suspect]
     Route: 058
     Dates: start: 20101207, end: 20110222
  2. SUBOXONE [Concomitant]
  3. MIRTAZAPINE [Concomitant]
     Route: 048
  4. RIBAVIRIN [Suspect]
     Route: 048
     Dates: start: 20101207, end: 20110301
  5. MIRTAZAPINE [Concomitant]
     Indication: DEPRESSION
     Route: 048
     Dates: start: 20101201
  6. OMEPRAZOLE [Concomitant]
     Dosage: IF REQUIRED
     Route: 048
     Dates: start: 20101207

REACTIONS (1)
  - GASTRITIS [None]
